FAERS Safety Report 15598001 (Version 5)
Quarter: 2021Q3

REPORT INFORMATION
  Report Type: Report from Study
  Country: US (occurrence: US)
  Receive Date: 20181108
  Receipt Date: 20210913
  Transmission Date: 20211014
  Serious: Yes (Other)
  Sender: FDA-Public Use
  Company Number: US-MYLANLABS-2018M1013254

PATIENT
  Age: 50 Year
  Sex: Female
  Weight: 117.9 kg

DRUGS (2)
  1. COVID?19 VACCINE NOS. [Suspect]
     Active Substance: COVID-19 VACCINE NOS
     Indication: COVID-19 TREATMENT
     Dosage: UNK
  2. GLATIRAMER ACETATE INJECTION [Suspect]
     Active Substance: GLATIRAMER ACETATE
     Indication: RELAPSING-REMITTING MULTIPLE SCLEROSIS
     Dosage: 40 MILLIGRAM, 3XW
     Route: 058

REACTIONS (38)
  - Spinal pain [Unknown]
  - Illness [Unknown]
  - Injection site bruising [Unknown]
  - Chills [Unknown]
  - Somnolence [Recovered/Resolved]
  - Breast discolouration [Recovered/Resolved]
  - Visual impairment [Unknown]
  - Fall [Unknown]
  - Condition aggravated [Unknown]
  - Memory impairment [Unknown]
  - Clostridium test positive [Unknown]
  - Lethargy [Unknown]
  - Nausea [Unknown]
  - Dyspnoea [Recovered/Resolved]
  - Cough [Recovered/Resolved]
  - Limb discomfort [Unknown]
  - Loss of personal independence in daily activities [Unknown]
  - Paraesthesia [Unknown]
  - Ear pain [Unknown]
  - Pyrexia [Unknown]
  - Headache [Unknown]
  - Asthma [Recovered/Resolved]
  - Bedridden [Unknown]
  - Pain [Unknown]
  - Influenza like illness [Recovered/Resolved]
  - Deafness [Unknown]
  - Drug ineffective [Unknown]
  - Hypoaesthesia [Unknown]
  - Dizziness [Unknown]
  - Ear infection [Unknown]
  - Back pain [Unknown]
  - Asthenia [Unknown]
  - Lymphadenopathy [Recovered/Resolved]
  - Haematochezia [Recovered/Resolved]
  - Pain in extremity [Unknown]
  - Injection site mass [Unknown]
  - Gait disturbance [Recovered/Resolved]
  - Therapy interrupted [Unknown]

NARRATIVE: CASE EVENT DATE: 20210501
